FAERS Safety Report 5323308-4 (Version None)
Quarter: 2007Q2

REPORT INFORMATION
  Report Type: 
  Country: None (occurrence: None)
  Receive Date: 20070221
  Receipt Date: 20061214
  Transmission Date: 20071010
  Serious: Yes (Other)
  Sender: FDA-Public Use
  Company Number: BDI-008858

PATIENT
  Sex: Male

DRUGS (1)
  1. IOPAMIDOL [Suspect]
     Indication: COMPUTERISED TOMOGRAM ABDOMEN
     Dosage: 98 ML IV
     Route: 042

REACTIONS (1)
  - RENAL FAILURE ACUTE [None]
